FAERS Safety Report 10215789 (Version 1)
Quarter: 2014Q2

REPORT INFORMATION
  Report Type: Spontaneous
  Country: DE (occurrence: DE)
  Receive Date: 20140604
  Receipt Date: 20140604
  Transmission Date: 20141212
  Serious: Yes (Hospitalization)
  Sender: FDA-Public Use
  Company Number: PHHY2014DE066715

PATIENT
  Age: 40 Year
  Sex: Female

DRUGS (7)
  1. LEPONEX [Suspect]
     Dosage: 600 MG, EVERY DAY
     Route: 048
     Dates: start: 20130510
  2. SOLIAN [Suspect]
     Dosage: 800 MG, EVERY DAY
     Route: 048
     Dates: start: 2012
  3. LYRICA [Suspect]
     Indication: FEAR
     Dosage: 600 MG, EVERY DAY
     Route: 048
  4. GASTROZEPIN [Concomitant]
     Dosage: 100 MG, EVERY DAY
     Route: 048
  5. TRUXAL [Concomitant]
     Indication: FEAR
  6. TRUXAL [Concomitant]
     Indication: RESTLESSNESS
  7. TRUXAL [Concomitant]
     Indication: SLEEP DISORDER

REACTIONS (2)
  - Metabolic syndrome [Not Recovered/Not Resolved]
  - Weight increased [Not Recovered/Not Resolved]
